FAERS Safety Report 19383576 (Version 1)
Quarter: 2021Q2

REPORT INFORMATION
  Report Type: Other
  Country: JP (occurrence: JP)
  Receive Date: 20210608
  Receipt Date: 20210608
  Transmission Date: 20210717
  Serious: Yes (Hospitalization, Other)
  Sender: FDA-Public Use
  Company Number: JP-GUARDIAN DRUG COMPANY-2112457

PATIENT
  Age: 67 Year
  Sex: Female

DRUGS (1)
  1. CHILDRENS IBUPROFEN [Suspect]
     Active Substance: IBUPROFEN
     Indication: DENTAL CARIES
     Route: 048

REACTIONS (2)
  - Small intestine ulcer [Recovered/Resolved]
  - Small intestinal obstruction [Recovered/Resolved]
